FAERS Safety Report 11401682 (Version 2)
Quarter: 2015Q3

REPORT INFORMATION
  Report Type: Report from Study
  Country: US (occurrence: US)
  Receive Date: 20150821
  Receipt Date: 20150908
  Transmission Date: 20151125
  Serious: Yes (Other)
  Sender: FDA-Public Use
  Company Number: PHEH2014US023137

PATIENT
  Sex: Male
  Weight: 83.9 kg

DRUGS (1)
  1. GILENYA [Suspect]
     Active Substance: FINGOLIMOD HYDROCHLORIDE
     Indication: MULTIPLE SCLEROSIS
     Dosage: 0.5 MG, QD
     Route: 048
     Dates: start: 20141028, end: 20150715

REACTIONS (4)
  - Central nervous system lesion [Not Recovered/Not Resolved]
  - Pain in extremity [Recovering/Resolving]
  - Hepatic enzyme increased [Not Recovered/Not Resolved]
  - Sciatica [Recovering/Resolving]
